FAERS Safety Report 20836083 (Version 1)
Quarter: 2022Q2

REPORT INFORMATION
  Report Type: Spontaneous
  Country: US (occurrence: US)
  Receive Date: 20220516
  Receipt Date: 20220516
  Transmission Date: 20220721
  Serious: No
  Sender: FDA-Public Use
  Company Number: US-BRISTOL-MYERS SQUIBB COMPANY-2022-023543

PATIENT
  Age: 81 Year
  Sex: Female

DRUGS (1)
  1. POMALYST [Suspect]
     Active Substance: POMALIDOMIDE
     Indication: Anaemia
     Dosage: FREQUENCY: FOR 21 DAYS , THEN TAKE 7 DAYS OFF
     Route: 048
     Dates: start: 20211102

REACTIONS (2)
  - Cardiac disorder [Unknown]
  - Intentional product use issue [Unknown]
